FAERS Safety Report 7020733-0 (Version None)
Quarter: 2010Q3

REPORT INFORMATION
  Report Type: 
  Country: None (occurrence: None)
  Receive Date: 20100927
  Receipt Date: 20100915
  Transmission Date: 20110219
  Serious: No
  Sender: FDA-Public Use
  Company Number: B0674545A

PATIENT
  Age: 62 Year
  Sex: Male

DRUGS (5)
  1. ROPINIROLE HYDROCHLORIDE [Suspect]
     Indication: PARKINSON'S DISEASE
  2. PERGOLIDE MESYLATE [Suspect]
     Indication: PARKINSON'S DISEASE
  3. LEVODOPA (FORMULATION UNKNOWN) (GENERIC) (LEVODOPA) [Suspect]
     Indication: PARKINSON'S DISEASE
  4. LEVODOPA (FORMULATION UNKNOWN) (GENERIC) (LEVODOPA) [Suspect]
     Indication: PARKINSON'S DISEASE
  5. ENTACAPONE [Suspect]
     Indication: PARKINSON'S DISEASE

REACTIONS (3)
  - CATATONIA [None]
  - DOPAMINE DYSREGULATION SYNDROME [None]
  - DYSKINESIA [None]
